FAERS Safety Report 19434386 (Version 1)
Quarter: 2021Q2

REPORT INFORMATION
  Report Type: Spontaneous
  Country: US (occurrence: US)
  Receive Date: 20210617
  Receipt Date: 20210617
  Transmission Date: 20210717
  Serious: No
  Sender: FDA-Public Use
  Company Number: US-ROCHE-2600314

PATIENT
  Age: 33 Year
  Sex: Female

DRUGS (1)
  1. ACTEMRA [Suspect]
     Active Substance: TOCILIZUMAB
     Indication: RHEUMATOID ARTHRITIS
     Dosage: EVERY OTHER WEEK ONGONIGN: YES
     Route: 058
     Dates: start: 20200319

REACTIONS (2)
  - Pruritus [Unknown]
  - Piloerection [Recovering/Resolving]

NARRATIVE: CASE EVENT DATE: 202004
